FAERS Safety Report 9423522 (Version 1)
Quarter: 2013Q3

REPORT INFORMATION
  Report Type: Spontaneous
  Country: US (occurrence: US)
  Receive Date: 20130726
  Receipt Date: 20130726
  Transmission Date: 20140515
  Serious: Yes (Death, Other)
  Sender: FDA-Public Use
  Company Number: US-CELGENEUS-163-20785-13073022

PATIENT
  Sex: 0

DRUGS (13)
  1. THALOMID [Suspect]
     Indication: PLASMA CELL MYELOMA
     Dosage: 200 MILLIGRAM
     Route: 048
     Dates: start: 200403, end: 201201
  2. BORTEZOMIB [Suspect]
     Indication: PLASMA CELL MYELOMA
     Dosage: 1 MILLIGRAM/SQ. METER
     Route: 065
     Dates: start: 200403, end: 201201
  3. BORTEZOMIB [Suspect]
     Dosage: 1.3 MILLIGRAM/SQ. METER
     Route: 065
     Dates: start: 200403, end: 201201
  4. CISPLATIN [Suspect]
     Indication: PLASMA CELL MYELOMA
     Dosage: 1.0-3 MG/M2
     Route: 041
     Dates: start: 200403, end: 201201
  5. DEXAMETHASONE [Suspect]
     Indication: PLASMA CELL MYELOMA
     Dosage: 12 MILLIGRAM
     Route: 065
     Dates: start: 200403, end: 201201
  6. DEXAMETHASONE [Suspect]
     Dosage: 20 MILLIGRAM
     Route: 065
     Dates: start: 200403, end: 201201
  7. DEXAMETHASONE [Suspect]
     Dosage: 40 MILLIGRAM
     Route: 065
     Dates: start: 200403, end: 201201
  8. DOXORUBICIN [Suspect]
     Indication: PLASMA CELL MYELOMA
     Dosage: 1-3 MG/M2
     Route: 041
     Dates: start: 200403, end: 201201
  9. M-TOR INHIBITOR RAPAMYCIN [Suspect]
     Indication: PLASMA CELL MYELOMA
     Dosage: 3 MILLIGRAM
     Route: 065
     Dates: start: 200403, end: 201201
  10. M-TOR INHIBITOR RAPAMYCIN [Suspect]
     Dosage: 1 MILLIGRAM
     Route: 065
     Dates: start: 200403, end: 201201
  11. FLUCONAZOLE [Concomitant]
     Indication: INFECTION PROPHYLAXIS
     Dosage: 200 MILLIGRAM
     Route: 048
  12. LEVOFLOXACIN [Concomitant]
     Indication: INFECTION PROPHYLAXIS
     Dosage: 500 MILLIGRAM
     Route: 048
  13. ACYCLOVIR [Concomitant]
     Indication: INFECTION PROPHYLAXIS
     Dosage: 800 MILLIGRAM
     Route: 048

REACTIONS (79)
  - Rectal haemorrhage [Unknown]
  - Melaena [Unknown]
  - Mental status changes [Unknown]
  - Hypotension [Unknown]
  - Mood altered [Unknown]
  - Confusional state [Unknown]
  - Depression [Unknown]
  - Constipation [Unknown]
  - Dizziness [Unknown]
  - Febrile neutropenia [Unknown]
  - Nausea [Unknown]
  - Infection [Unknown]
  - Diarrhoea [Unknown]
  - Pyrexia [Unknown]
  - Bronchitis [Unknown]
  - Opportunistic infection [Unknown]
  - Pain [Unknown]
  - Rash [Unknown]
  - Exfoliative rash [Unknown]
  - Lung infection [Unknown]
  - Thrombocytopenia [Unknown]
  - Leukopenia [Unknown]
  - Anaemia [Unknown]
  - Fatigue [Unknown]
  - Dyspnoea [Unknown]
  - Back pain [Unknown]
  - Peripheral sensory neuropathy [Unknown]
  - Syncope [Unknown]
  - Disease progression [Unknown]
  - Lymphopenia [Unknown]
  - Sepsis [Unknown]
  - Mucosal inflammation [Unknown]
  - Arthropathy [Unknown]
  - Blood bicarbonate decreased [Unknown]
  - Gastrointestinal disorder [Unknown]
  - Hypoxia [Unknown]
  - Hypermagnesaemia [Unknown]
  - Troponin I [Unknown]
  - Musculoskeletal disorder [Unknown]
  - Blood bilirubin increased [Unknown]
  - Hypoalbuminaemia [Unknown]
  - Hypophosphataemia [Unknown]
  - Blood cholesterol abnormal [Unknown]
  - Cognitive disorder [Unknown]
  - Haemorrhage [Unknown]
  - Skin disorder [Unknown]
  - Hypertriglyceridaemia [Unknown]
  - Musculoskeletal disorder [Unknown]
  - Nervous system disorder [Unknown]
  - Gastrointestinal disorder [Unknown]
  - Thrombotic microangiopathy [Unknown]
  - Pneumonitis [Unknown]
  - Memory impairment [Unknown]
  - Cardio-respiratory arrest [Unknown]
  - Hypomagnesaemia [Unknown]
  - Oesophagitis [Unknown]
  - Pharyngitis [Unknown]
  - Stomatitis [Unknown]
  - Hypokalaemia [Unknown]
  - Hyperglycaemia [Unknown]
  - Decreased appetite [Unknown]
  - Hyponatraemia [Unknown]
  - Hypocalcaemia [Unknown]
  - Alanine aminotransferase increased [Unknown]
  - Aspartate aminotransferase increased [Unknown]
  - Hyperkalaemia [Unknown]
  - Gait disturbance [Unknown]
  - Dehydration [Unknown]
  - Hypercalcaemia [Unknown]
  - Diabetes mellitus [Unknown]
  - Insomnia [Unknown]
  - Blood alkaline phosphatase increased [Unknown]
  - Colitis [Unknown]
  - Blood creatinine increased [Unknown]
  - Hepatic function abnormal [Unknown]
  - Muscular weakness [Unknown]
  - Muscular weakness [Unknown]
  - Renal failure [Unknown]
  - Hearing impaired [Unknown]
